FAERS Safety Report 11840174 (Version 2)
Quarter: 2015Q4

REPORT INFORMATION
  Report Type: Spontaneous
  Country: US (occurrence: US)
  Receive Date: 20151216
  Receipt Date: 20151217
  Transmission Date: 20160305
  Serious: Yes (Hospitalization, Other)
  Sender: FDA-Public Use
  Company Number: US-PFIZER INC-2015427540

PATIENT
  Age: 65 Year
  Sex: Female
  Weight: 100.68 kg

DRUGS (26)
  1. MAGNESIUM [Concomitant]
     Active Substance: MAGNESIUM
     Dosage: 400 MG, DAILY
  2. PROTONIX DR [Concomitant]
     Dosage: 40 MG, DAILY
  3. VESICARE [Concomitant]
     Active Substance: SOLIFENACIN SUCCINATE
     Dosage: 10 MG, DAILY
  4. LYRICA [Suspect]
     Active Substance: PREGABALIN
     Indication: INTERVERTEBRAL DISC DEGENERATION
  5. CYCLOBENZAPRINE [Concomitant]
     Active Substance: CYCLOBENZAPRINE
     Dosage: 5 MG, AS NEEDED (TAKE ONE TAB DAILY AS NEEDED )
  6. PERCOCET [Concomitant]
     Active Substance: ACETAMINOPHEN\OXYCODONE HYDROCHLORIDE
     Dosage: 7.5-325 MG -ONE EVERY 6 HOURS AS NEEDED MAX 3/DAY
  7. BRIMONIDINE TARTRATE. [Concomitant]
     Active Substance: BRIMONIDINE TARTRATE
     Dosage: 0.15 %, UNK
  8. FLUOXETINE HCL [Concomitant]
     Active Substance: FLUOXETINE HYDROCHLORIDE
     Dosage: 20 MG, DAILY
  9. LIPITOR [Concomitant]
     Active Substance: ATORVASTATIN CALCIUM
     Dosage: 40 MG, DAILY
  10. METOPROLOL SUCCINATE ER [Concomitant]
     Active Substance: METOPROLOL SUCCINATE
     Dosage: 25 MG, DAILY
  11. STOOL SOFTENER [Concomitant]
     Active Substance: DOCUSATE CALCIUM
     Dosage: 100 MG, DAILY
  12. VITAMIN D [Concomitant]
     Active Substance: CHOLECALCIFEROL
     Dosage: 400 IU, DAILY
  13. LYRICA [Suspect]
     Active Substance: PREGABALIN
     Indication: POST LAMINECTOMY SYNDROME
     Dosage: 300 MG, 2X/DAY (TAKE ONE CAP EVERY 12HOURS)
  14. LYRICA [Suspect]
     Active Substance: PREGABALIN
     Indication: ARTHROPATHY
  15. EXCEDRIN MIGRAINE [Concomitant]
     Active Substance: ACETAMINOPHEN\ASPIRIN\CAFFEINE
     Dosage: 250-250-65 MG , AS NEEDED
  16. LIDOCAINE. [Concomitant]
     Active Substance: LIDOCAINE
     Dosage: 5 %, AS NEEDED (THREE TIMES DAILY AS NEEDED)
     Route: 061
  17. METFORMIN HCL [Concomitant]
     Active Substance: METFORMIN HYDROCHLORIDE
     Dosage: 500 MG, 4X/DAY
  18. NOVOLIN R [Concomitant]
     Active Substance: INSULIN HUMAN
     Dosage: 100 UNITS/ML, UNK
  19. ASPIRE [Concomitant]
     Dosage: 81 MG, DAILY
  20. POLYTRIM [Concomitant]
     Active Substance: POLYMYXIN B SULFATE\TRIMETHOPRIM SULFATE
     Dosage: 0.1-10,000 %-UNIT/ML DAILY
     Route: 031
  21. LYRICA [Suspect]
     Active Substance: PREGABALIN
     Indication: SPINAL OSTEOARTHRITIS
  22. RAMIPRIL. [Concomitant]
     Active Substance: RAMIPRIL
     Dosage: 2.5 MG, DAILY
  23. LYRICA [Suspect]
     Active Substance: PREGABALIN
     Indication: ARTHRALGIA
  24. LEVEMIR [Concomitant]
     Active Substance: INSULIN DETEMIR
     Dosage: 100 UNITS/ML, UNK
  25. TIMOLOL. [Concomitant]
     Active Substance: TIMOLOL
     Dosage: 0.25 %, DAILY
  26. VITAMIN C [Concomitant]
     Active Substance: ASCORBIC ACID
     Dosage: UNK, DAILY

REACTIONS (17)
  - Dysstasia [Unknown]
  - Skin warm [Unknown]
  - Renal failure [Recovered/Resolved]
  - Musculoskeletal pain [Unknown]
  - Fall [Unknown]
  - Tenderness [Unknown]
  - Dehydration [Recovered/Resolved]
  - Pain [Unknown]
  - Constipation [Unknown]
  - Dry skin [Unknown]
  - Thrombotic thrombocytopenic purpura [Unknown]
  - Disease progression [Unknown]
  - Back pain [Unknown]
  - Pain in extremity [Recovered/Resolved]
  - Arthralgia [Unknown]
  - Dry mouth [Unknown]
  - Hypokinesia [Unknown]
